FAERS Safety Report 6920919-7 (Version None)
Quarter: 2010Q3

REPORT INFORMATION
  Report Type: 
  Country: None (occurrence: None)
  Receive Date: 20100812
  Receipt Date: 20100802
  Transmission Date: 20110219
  Serious: Yes (Other)
  Sender: FDA-Public Use
  Company Number: CO-JNJFOC-20100800856

PATIENT
  Age: 76 Year
  Sex: Male

DRUGS (3)
  1. REMICADE [Suspect]
     Indication: PSORIASIS
     Route: 042
  2. CAPTOPRIL [Concomitant]
  3. ANTI-DIABETIC DRUGS [Concomitant]
     Indication: DIABETES MELLITUS

REACTIONS (3)
  - ANAEMIA [None]
  - TUBERCULOSIS [None]
  - VIRAL INFECTION [None]
